FAERS Safety Report 15413972 (Version 1)
Quarter: 2018Q3

REPORT INFORMATION
  Report Type: Report from Study
  Country: KR (occurrence: KR)
  Receive Date: 20180921
  Receipt Date: 20180921
  Transmission Date: 20181010
  Serious: Yes (Hospitalization)
  Sender: FDA-Public Use
  Company Number: KR-ASTRAZENECA-2018SE95177

PATIENT
  Age: 26097 Day
  Sex: Male
  Weight: 47.8 kg

DRUGS (2)
  1. MEDI4736 [Suspect]
     Active Substance: DURVALUMAB
     Indication: OESOPHAGEAL SQUAMOUS CELL CARCINOMA
     Dosage: 960, DAILY
     Route: 042
     Dates: start: 20170607, end: 20180523
  2. SMX TMP INJ [Concomitant]
     Indication: PROPHYLAXIS
     Route: 042
     Dates: start: 20170705

REACTIONS (2)
  - Colitis [Recovering/Resolving]
  - Intestinal perforation [Recovering/Resolving]

NARRATIVE: CASE EVENT DATE: 20180719
